FAERS Safety Report 24092849 (Version 1)
Quarter: 2024Q3

REPORT INFORMATION
  Report Type: Spontaneous
  Country: FR (occurrence: FR)
  Receive Date: 20240715
  Receipt Date: 20240715
  Transmission Date: 20241017
  Serious: Yes (Hospitalization, Other)
  Sender: BAXTER
  Company Number: None

PATIENT
  Age: 72 Year
  Sex: Female
  Weight: 92 kg

DRUGS (3)
  1. CYCLOPHOSPHAMIDE [Suspect]
     Active Substance: CYCLOPHOSPHAMIDE
     Indication: Marginal zone lymphoma
     Dosage: 200 MG
     Route: 048
     Dates: start: 20240502, end: 20240502
  2. RITUXIMAB [Suspect]
     Active Substance: RITUXIMAB
     Indication: Marginal zone lymphoma
     Dosage: 780 MG, FORMULATION: SOLUTION TO BE DILUTED FOR INFUSION, (MAMMAL/HAMSTER/CHO CELLS)
     Route: 042
     Dates: start: 20240502, end: 20240502
  3. DEXAMETHASONE [Suspect]
     Active Substance: DEXAMETHASONE
     Indication: Marginal zone lymphoma
     Dosage: 20 MG
     Route: 042
     Dates: start: 20240502, end: 20240502

REACTIONS (3)
  - Platelet transfusion [Recovered/Resolved]
  - Anaemia [Recovered/Resolved]
  - Thrombocytopenia [Recovered/Resolved]

NARRATIVE: CASE EVENT DATE: 20240502
